FAERS Safety Report 5766488-9 (Version None)
Quarter: 2008Q2

REPORT INFORMATION
  Report Type: 
  Country: None (occurrence: None)
  Receive Date: 20080606
  Receipt Date: 20080527
  Transmission Date: 20081010
  Serious: Yes (Hospitalization)
  Sender: FDA-Public Use
  Company Number: 2008SP009860

PATIENT
  Age: 1 Day
  Sex: Male
  Weight: 1.23 kg

DRUGS (7)
  1. BETAMETHASONE [Suspect]
     Indication: DRUG USE FOR UNKNOWN INDICATION
     Dosage: TRPL
     Route: 064
  2. MIFEGYNE (MIFEPRISTONE) [Suspect]
     Indication: ABORTION INDUCED
     Dosage: 1 DF; ONCE
  3. KETOPROFEN [Suspect]
     Indication: DRUG USE FOR UNKNOWN INDICATION
     Dosage: 1 DF;ONCE;TRPL
     Route: 064
  4. NICARDIPINE HCL [Suspect]
     Indication: DRUG USE FOR UNKNOWN INDICATION
  5. AMOXICILLIN [Suspect]
     Indication: DRUG USE FOR UNKNOWN INDICATION
  6. FLAGYL [Suspect]
     Indication: DRUG USE FOR UNKNOWN INDICATION
  7. CYTOTEC [Suspect]
     Indication: ABORTION INDUCED
     Dosage: 4 DF; ONCE; TRPL
     Route: 064

REACTIONS (9)
  - ABORTION MISSED [None]
  - BRONCHOPULMONARY DYSPLASIA [None]
  - CAESAREAN SECTION [None]
  - CEREBRAL HAEMORRHAGE NEONATAL [None]
  - GLUCOSE-6-PHOSPHATE DEHYDROGENASE DEFICIENCY [None]
  - MATERNAL DRUGS AFFECTING FOETUS [None]
  - NECROTISING ENTEROCOLITIS NEONATAL [None]
  - NEONATAL RESPIRATORY DISTRESS SYNDROME [None]
  - PREMATURE BABY [None]
